FAERS Safety Report 15333150 (Version 1)
Quarter: 2018Q3

REPORT INFORMATION
  Report Type: Spontaneous
  Country: US (occurrence: US)
  Receive Date: 20180830
  Receipt Date: 20180830
  Transmission Date: 20181010
  Serious: No
  Sender: FDA-Public Use
  Company Number: US-BAUSCH-BL-2018-023434

PATIENT
  Age: 53 Year
  Sex: Female
  Weight: 59.02 kg

DRUGS (2)
  1. TROPICAMIDE. [Suspect]
     Active Substance: TROPICAMIDE
     Indication: PUPIL DILATION PROCEDURE
     Dosage: AS DIRECTED, FOR BOTH EYES
     Route: 031
     Dates: start: 20180726, end: 20180726
  2. TROPICAMIDE. [Suspect]
     Active Substance: TROPICAMIDE
     Dosage: USED IN HER LEFT EYE
     Route: 031
     Dates: start: 20180726, end: 20180726

REACTIONS (2)
  - Madarosis [Not Recovered/Not Resolved]
  - Extra dose administered [Recovered/Resolved]

NARRATIVE: CASE EVENT DATE: 20180726
